FAERS Safety Report 25248478 (Version 1)
Quarter: 2025Q2

REPORT INFORMATION
  Report Type: Spontaneous
  Country: US (occurrence: US)
  Receive Date: 20250429
  Receipt Date: 20250429
  Transmission Date: 20250716
  Serious: No
  Sender: TARO
  Company Number: US-TARO PHARMACEUTICALS USA INC.-2025TAR00968

PATIENT

DRUGS (2)
  1. FLUOROURACIL [Suspect]
     Active Substance: FLUOROURACIL
     Indication: Precancerous skin lesion
     Dosage: ON FACE,2X/DAY
     Route: 061
     Dates: start: 2024
  2. FLUOROURACIL [Suspect]
     Active Substance: FLUOROURACIL
     Dosage: THIN LAYER TO HER NOSE
     Route: 061
     Dates: start: 20250303

REACTIONS (6)
  - Application site pruritus [Unknown]
  - Application site irritation [Recovered/Resolved]
  - Application site pain [Recovered/Resolved]
  - Erythema [Recovered/Resolved]
  - Rash macular [Recovered/Resolved]
  - Scab [Recovered/Resolved]
